FAERS Safety Report 9036987 (Version 1)
Quarter: 2013Q1

REPORT INFORMATION
  Report Type: Spontaneous
  Country: DK (occurrence: None)
  Receive Date: 20130115
  Receipt Date: 20130115
  Transmission Date: 20140127
  Serious: Yes (Other)
  Sender: FDA-Public Use
  Company Number: 2013MA000268

PATIENT
  Age: 71 Year
  Sex: Male

DRUGS (2)
  1. INDAPAMIDE [Suspect]
     Indication: HYPERTENSION
     Dates: start: 2012
  2. ANTIHYPERTENSIVES [Concomitant]

REACTIONS (5)
  - Mediastinal disorder [None]
  - Chest X-ray abnormal [None]
  - Swollen tongue [None]
  - Palatal disorder [None]
  - Inflammation [None]
